FAERS Safety Report 7903978-4 (Version None)
Quarter: 2011Q4

REPORT INFORMATION
  Report Type: 
  Country: None (occurrence: None)
  Receive Date: 20111109
  Receipt Date: 20111104
  Transmission Date: 20120403
  Serious: Yes (Other)
  Sender: FDA-Public Use
  Company Number: US-BAYER-201047276GPV

PATIENT
  Age: 66 Year
  Sex: Female
  Weight: 78.458 kg

DRUGS (9)
  1. PROTONIX [Concomitant]
     Dosage: 40 MG, QD
     Route: 048
  2. PATANOL [Concomitant]
     Dosage: 0.1 %, UNK
     Route: 047
  3. FISH OIL [Concomitant]
  4. MULTI-VITAMINS [Concomitant]
  5. ASPIRIN [Concomitant]
     Dosage: 81 MG, QD
     Route: 048
  6. LEUKINE [Suspect]
     Indication: MELANOMA RECURRENT
     Dosage: 455 MCG 2 WEEKS ON / 2 WEEKS OFF
     Route: 058
     Dates: start: 20100426
  7. CRESTOR [Concomitant]
     Dosage: 10 MG, QD
     Route: 048
  8. IRON [Concomitant]
     Dosage: 27 MG, UNK
  9. CLARINEX [Concomitant]
     Dosage: 5 MG, QD
     Route: 048

REACTIONS (5)
  - INJECTION SITE INFLAMMATION [None]
  - PROCEDURAL PAIN [None]
  - OVARIAN ADENOMA [None]
  - INJECTION SITE ERYTHEMA [None]
  - UTERINE MASS [None]
